FAERS Safety Report 8320644 (Version 4)
Quarter: 2014Q4

REPORT INFORMATION
  Report Type: Spontaneous
  Country: US (occurrence: US)
  Receive Date: 20120104
  Receipt Date: 20141113
  Transmission Date: 20150529
  Serious: Yes (Other)
  Sender: FDA-Public Use
  Company Number: US-PFIZER INC-2011316554

PATIENT
  Age: 50 Year
  Sex: Female
  Weight: 104 kg

DRUGS (9)
  1. BEXTRA [Suspect]
     Active Substance: VALDECOXIB
     Indication: PAIN IN EXTREMITY
  2. BEXTRA [Suspect]
     Active Substance: VALDECOXIB
     Indication: ARTHRITIS
  3. LOSARTAN POTASSIUM. [Concomitant]
     Active Substance: LOSARTAN POTASSIUM
     Indication: BLOOD PRESSURE
     Dosage: 50 MG, 1X/DAY
  4. DILTIAZEM HYDROCHLORIDE EXTENDED RELEASE [Concomitant]
     Active Substance: DILTIAZEM HYDROCHLORIDE
     Indication: BLOOD PRESSURE
     Dosage: 120 MG, 1X/DAY
  5. TRIAMTERENE. [Concomitant]
     Active Substance: TRIAMTERENE
     Indication: DIURETIC THERAPY
     Dosage: 50/75 MG DAILY
  6. TRIAMTERENE. [Concomitant]
     Active Substance: TRIAMTERENE
     Indication: BLOOD PRESSURE ABNORMAL
  7. BEXTRA [Suspect]
     Active Substance: VALDECOXIB
     Indication: PERIPHERAL SWELLING
  8. CETIRIZINE [Concomitant]
     Active Substance: CETIRIZINE HYDROCHLORIDE
     Indication: SINUS DISORDER
     Dosage: 10 MG, DAILY
  9. BEXTRA [Suspect]
     Active Substance: VALDECOXIB
     Indication: TENDONITIS
     Dosage: 20 MG, 1X/DAY
     Route: 048
     Dates: start: 20041127

REACTIONS (4)
  - Visual impairment [Recovered/Resolved]
  - Ocular vascular disorder [Recovered/Resolved]
  - Mydriasis [Recovered/Resolved]
  - Vision blurred [Recovered/Resolved]

NARRATIVE: CASE EVENT DATE: 20080522
